FAERS Safety Report 5193430-4 (Version None)
Quarter: 2006Q4

REPORT INFORMATION
  Report Type: 
  Country: None (occurrence: None)
  Receive Date: 20061228
  Receipt Date: 20060419
  Transmission Date: 20070319
  Serious: No
  Sender: FDA-Public Use
  Company Number: US-GLAXOSMITHKLINE-A0602463A

PATIENT
  Age: 75 Year
  Sex: Female

DRUGS (3)
  1. FLUTICASONE PROPIONATE [Suspect]
     Dosage: 1SPR TWICE PER DAY
     Route: 045
     Dates: start: 20060412
  2. TYLENOL [Concomitant]
  3. ARMOUR [Concomitant]

REACTIONS (2)
  - HEADACHE [None]
  - SINUS HEADACHE [None]
